FAERS Safety Report 4900145-3 (Version None)
Quarter: 2006Q1

REPORT INFORMATION
  Report Type: 
  Country: None (occurrence: None)
  Receive Date: 20060201
  Receipt Date: 20060119
  Transmission Date: 20060701
  Serious: Yes (Other)
  Sender: FDA-Public Use
  Company Number: 2006011381

PATIENT
  Sex: Female

DRUGS (10)
  1. CELEBREX [Suspect]
     Indication: ARTHRALGIA
     Dosage: ORAL
     Route: 048
  2. THYROID TAB [Concomitant]
  3. PREVACID [Concomitant]
  4. CLARINEX [Concomitant]
  5. CALCIUM D SAUTER (ASCORBIC ACID, CALCIUM GLUCONATE, CALCIUM LACTATE, C [Concomitant]
  6. GLUCOSAMINE (GLUCOSAMINE) [Concomitant]
  7. ELAVIL [Concomitant]
  8. OCUVITE (ASCORBIC ACID, RETINOL, TOCOPHEROL) [Concomitant]
  9. BION TEARS (DEXTRAN 70, HYPROMELLOSE) [Concomitant]
  10. BILBERRY (MYRTILLUS) [Concomitant]

REACTIONS (4)
  - DIFFICULTY IN WALKING [None]
  - HYPOAESTHESIA [None]
  - INSOMNIA [None]
  - ROTATOR CUFF SYNDROME [None]
